FAERS Safety Report 5920073-4 (Version None)
Quarter: 2008Q4

REPORT INFORMATION
  Report Type: 
  Country: None (occurrence: None)
  Receive Date: 20081014
  Receipt Date: 20071007
  Transmission Date: 20090506
  Serious: Yes (Death, Hospitalization)
  Sender: FDA-Public Use
  Company Number: 2008AL004474

PATIENT
  Age: 72 Year
  Sex: Male

DRUGS (2)
  1. DIGOXIN [Suspect]
     Indication: DRUG USE FOR UNKNOWN INDICATION
     Dosage: PO
     Route: 048
     Dates: end: 20070910
  2. AMIODARONE HCL [Suspect]
     Indication: DRUG USE FOR UNKNOWN INDICATION

REACTIONS (18)
  - ADRENAL INSUFFICIENCY [None]
  - ANOREXIA [None]
  - ANXIETY [None]
  - AORTIC STENOSIS [None]
  - ASTHENIA [None]
  - ATELECTASIS [None]
  - ATRIAL FIBRILLATION [None]
  - CARDIAC FAILURE CONGESTIVE [None]
  - CARDIOMYOPATHY [None]
  - CONDITION AGGRAVATED [None]
  - DRUG INTOLERANCE [None]
  - HYPERGLYCAEMIA [None]
  - LOWER GASTROINTESTINAL HAEMORRHAGE [None]
  - NAUSEA [None]
  - PLEURAL EFFUSION [None]
  - PYREXIA [None]
  - RENAL FAILURE [None]
  - TREMOR [None]
